FAERS Safety Report 9133671 (Version 2)
Quarter: 2013Q4

REPORT INFORMATION
  Report Type: Spontaneous
  Country: GB (occurrence: GB)
  Receive Date: 20130302
  Receipt Date: 20131022
  Transmission Date: 20140711
  Serious: Yes (Life-Threatening)
  Sender: FDA-Public Use
  Company Number: GB-TEVA-388161ISR

PATIENT
  Age: 79 Year
  Sex: Male

DRUGS (5)
  1. OLANZAPINE [Suspect]
     Dosage: 15 MILLIGRAM DAILY; AT NIGHT
  2. TRAZODONE [Suspect]
     Dosage: 200 MILLIGRAM DAILY;
  3. VENLAFAXINE [Suspect]
     Dosage: 225 MILLIGRAM DAILY; 75MG IN THE MORNING, 150MG AT NIGHT
  4. LITHIUM [Suspect]
     Dosage: 600 MILLIGRAM DAILY; AT NIGHT
  5. BUSPIRONE [Concomitant]
     Dosage: 20 MILLIGRAM DAILY;

REACTIONS (1)
  - Ventricular tachyarrhythmia [Unknown]
